FAERS Safety Report 15557845 (Version 2)
Quarter: 2018Q4

REPORT INFORMATION
  Report Type: Spontaneous
  Country: FR (occurrence: FR)
  Receive Date: 20181027
  Receipt Date: 20181128
  Transmission Date: 20190205
  Serious: Yes (Hospitalization)
  Sender: FDA-Public Use
  Company Number: FR-009507513-1810FRA006555

PATIENT
  Age: 11 Month
  Sex: Female
  Weight: 9.7 kg

DRUGS (2)
  1. CELESTENE [BETAMETHASONE] [Suspect]
     Active Substance: BETAMETHASONE
     Indication: EAR INFECTION
     Dosage: 60 GTT, QD
     Route: 048
     Dates: start: 20180531, end: 20180601
  2. AMOXICILLIN. [Suspect]
     Active Substance: AMOXICILLIN
     Indication: EAR INFECTION
     Dosage: 3 DF, QD
     Route: 048
     Dates: start: 20180531, end: 20180601

REACTIONS (1)
  - Rash generalised [Recovered/Resolved]

NARRATIVE: CASE EVENT DATE: 20180601
